FAERS Safety Report 5676817-2 (Version None)
Quarter: 2008Q1

REPORT INFORMATION
  Report Type: 
  Country: None (occurrence: None)
  Receive Date: 20080324
  Receipt Date: 20080219
  Transmission Date: 20080703
  Serious: No
  Sender: FDA-Public Use
  Company Number: US-BAYER-200814932NA

PATIENT
  Sex: Female
  Weight: 54 kg

DRUGS (1)
  1. YAZ [Suspect]
     Route: 048
     Dates: start: 20070701

REACTIONS (2)
  - HEADACHE [None]
  - URINARY TRACT INFECTION [None]
